FAERS Safety Report 15586729 (Version 1)
Quarter: 2018Q4

REPORT INFORMATION
  Report Type: Report from Study
  Country: ES (occurrence: ES)
  Receive Date: 20181105
  Receipt Date: 20181105
  Transmission Date: 20190205
  Serious: Yes (Hospitalization)
  Sender: FDA-Public Use
  Company Number: ES-SA-2018SA298224

PATIENT
  Age: 67 Year
  Sex: Male
  Weight: 67 kg

DRUGS (2)
  1. INSULIN GLARGINE [Suspect]
     Active Substance: INSULIN GLARGINE
     Indication: TYPE 2 DIABETES MELLITUS
     Dosage: 32 IU, QD
     Route: 058
     Dates: start: 20170321
  2. GLICAZIDA [Concomitant]
     Active Substance: GLICLAZIDE
     Indication: TYPE 2 DIABETES MELLITUS
     Dosage: 1 DF, QD
     Route: 048

REACTIONS (11)
  - Syncope [Recovered/Resolved]
  - Blood glucose increased [Recovered/Resolved]
  - Hyperhidrosis [Recovered/Resolved]
  - Asthenia [Recovered/Resolved]
  - Blood glucose increased [Recovered/Resolved]
  - Blood pressure increased [Recovered/Resolved]
  - Tremor [Recovered/Resolved]
  - Blood glucose decreased [Recovered/Resolved]
  - Inappropriate schedule of product administration [Unknown]
  - Dizziness [Recovered/Resolved]
  - Hypoglycaemia [Recovered/Resolved]

NARRATIVE: CASE EVENT DATE: 20180815
